FAERS Safety Report 11232250 (Version 17)
Quarter: 2017Q1

REPORT INFORMATION
  Report Type: Report from Study
  Country: CA (occurrence: CA)
  Receive Date: 20150701
  Receipt Date: 20170315
  Transmission Date: 20170428
  Serious: Yes (Death, Hospitalization, Other)
  Sender: FDA-Public Use
  Company Number: PHHY2014CA127990

PATIENT
  Age: 78 Year
  Sex: Male

DRUGS (4)
  1. SANDOSTATIN LAR DEPOT [Suspect]
     Active Substance: OCTREOTIDE ACETATE
     Indication: NEUROENDOCRINE CARCINOMA
     Dosage: 20 MG, QMO (ONCE A MONTH)
     Route: 030
     Dates: start: 20071126
  2. SANDOSTATIN LAR DEPOT [Suspect]
     Active Substance: OCTREOTIDE ACETATE
     Dosage: 30 MG, QMO (EVERY 4 WEEKS)
     Route: 030
     Dates: start: 20101229
  3. SANDOSTATIN LAR DEPOT [Suspect]
     Active Substance: OCTREOTIDE ACETATE
     Dosage: 60 MG, QMO (ONCE A MONTH)
     Route: 030
     Dates: start: 20140113
  4. HYDROCHLOROTHIAZIDE. [Concomitant]
     Active Substance: HYDROCHLOROTHIAZIDE
     Indication: PRODUCT USED FOR UNKNOWN INDICATION
     Dosage: 25 MG, QD
     Route: 065

REACTIONS (21)
  - Fatigue [Unknown]
  - Sedation [Unknown]
  - Chills [Recovered/Resolved]
  - Brain neoplasm benign [Unknown]
  - Blood pressure increased [Unknown]
  - Needle issue [Unknown]
  - Cerebrovascular accident [Unknown]
  - Upper limb fracture [Unknown]
  - Vomiting [Recovered/Resolved]
  - Body temperature decreased [Unknown]
  - Swelling [Unknown]
  - Pain [Unknown]
  - Diarrhoea [Recovered/Resolved]
  - Renal disorder [Unknown]
  - Fall [Recovering/Resolving]
  - Blood pressure systolic increased [Unknown]
  - Skin abrasion [Unknown]
  - Pain in extremity [Unknown]
  - Death [Fatal]
  - Blood creatine increased [Unknown]
  - Pyrexia [Recovered/Resolved]

NARRATIVE: CASE EVENT DATE: 20140925
